FAERS Safety Report 14528249 (Version 2)
Quarter: 2018Q1

REPORT INFORMATION
  Report Type: Report from Study
  Country: JP (occurrence: JP)
  Receive Date: 20180214
  Receipt Date: 20180214
  Transmission Date: 20180509
  Serious: Yes (Hospitalization)
  Sender: FDA-Public Use
  Company Number: JP-CONCORDIA PHARMACEUTICALS INC.-GSH201802-000580

PATIENT
  Age: 42 Year
  Sex: Female

DRUGS (26)
  1. LOXOPROFEN SODIUM [Concomitant]
     Active Substance: LOXOPROFEN SODIUM
  2. LEXAPRO [Concomitant]
     Active Substance: ESCITALOPRAM OXALATE
  3. EPL CAP. [Concomitant]
  4. BIO-THREE [Concomitant]
     Active Substance: HERBALS
  5. FUCIDIN [Concomitant]
     Active Substance: FUSIDIC ACID
  6. ROZEREM [Concomitant]
     Active Substance: RAMELTEON
  7. ZOLPIDEM [Concomitant]
     Active Substance: ZOLPIDEM\ZOLPIDEM TARTRATE
  8. MECOBALAMIN [Concomitant]
     Active Substance: METHYLCOBALAMIN
  9. SARPOGRELATE [Concomitant]
     Active Substance: SARPOGRELATE
  10. EPERISONE [Concomitant]
     Active Substance: EPERISONE
  11. LEVOTOMIN [Concomitant]
     Active Substance: LEVOMEPROMAZINE
  12. PLAQUENIL [Suspect]
     Active Substance: HYDROXYCHLOROQUINE SULFATE
     Indication: SYSTEMIC LUPUS ERYTHEMATOSUS
     Route: 048
     Dates: start: 20160907
  13. BREDININ [Concomitant]
     Active Substance: MIZORIBINE
  14. TRAMCET [Concomitant]
     Active Substance: ACETAMINOPHEN\TRAMADOL
  15. FOSAMAC [Concomitant]
     Active Substance: ALENDRONATE SODIUM
  16. LUNESTA [Concomitant]
     Active Substance: ESZOPICLONE
  17. TAKECAB [Concomitant]
     Active Substance: VONOPRAZAN FUMURATE
  18. URSO [Concomitant]
     Active Substance: URSODIOL
  19. REFLAP [Concomitant]
  20. RHYTHMY [Concomitant]
     Active Substance: RILMAZAFONE HYDROCHLORIDE
  21. PLAQUENIL [Suspect]
     Active Substance: HYDROXYCHLOROQUINE SULFATE
     Route: 048
  22. PREDONINE [Concomitant]
     Active Substance: PREDNISOLONE
  23. ATORVASTATIN [Concomitant]
     Active Substance: ATORVASTATIN
  24. ASTOMIN [Concomitant]
     Active Substance: DIMEMORFAN
  25. AMBROXOL [Concomitant]
     Active Substance: AMBROXOL
  26. SILECE [Concomitant]
     Active Substance: FLUNITRAZEPAM

REACTIONS (3)
  - Anaemia [Not Recovered/Not Resolved]
  - Deep vein thrombosis [Recovered/Resolved]
  - Cellulitis [Recovered/Resolved]

NARRATIVE: CASE EVENT DATE: 20161228
